FAERS Safety Report 9890559 (Version 1)
Quarter: 2014Q1

REPORT INFORMATION
  Report Type: Spontaneous
  Country: US (occurrence: None)
  Receive Date: 20140210
  Receipt Date: 20140210
  Transmission Date: 20141002
  Serious: Yes (Hospitalization)
  Sender: FDA-Public Use
  Company Number: None

PATIENT
  Age: 53 Year
  Sex: Male
  Weight: 111.4 kg

DRUGS (1)
  1. DULOXETINE [Suspect]
     Indication: DIABETIC NEUROPATHY
     Route: 048
     Dates: start: 20140118, end: 20140120

REACTIONS (1)
  - Muscle spasms [None]
